FAERS Safety Report 8805921 (Version 1)
Quarter: 2012Q4

REPORT INFORMATION
  Report Type: Spontaneous
  Country: GB (occurrence: None)
  Receive Date: 20120918
  Receipt Date: 20120918
  Transmission Date: 20130627
  Serious: Yes (Other)
  Sender: FDA-Public Use
  Company Number: GER/UKI/12/0025822

PATIENT
  Age: 83 Year
  Sex: Female

DRUGS (13)
  1. OMEPRAZOLE [Suspect]
     Indication: DRUG USE FOR UNKNOWN INDICATION
     Route: 048
     Dates: end: 20120821
  2. PHENYTOIN SODIUM [Suspect]
     Route: 041
     Dates: start: 20120818, end: 20120818
  3. AMOXICILLIN\CLAVULANATE POTASSIUM [Suspect]
     Route: 040
     Dates: start: 20120818, end: 20120819
  4. EPILIM [Suspect]
     Route: 048
     Dates: start: 20120819, end: 20120821
  5. GENTICIN [Suspect]
     Route: 041
     Dates: start: 20120818, end: 20120818
  6. BUTRANS [Concomitant]
  7. CALCEOS [Concomitant]
  8. EBIXA (MEMANTINE HYDROCHLORIDE) [Concomitant]
  9. MOVICOL [Concomitant]
  10. PARACETAMOL (PARACETAMOL) [Concomitant]
  11. PROTELOS (STRONTIUM RANELATE) [Concomitant]
  12. SENNA (SENNA ALEXANDRINA) [Concomitant]
  13. TRIMETHOPRIM (TRIMETHOPRIM) [Concomitant]

REACTIONS (4)
  - Blood creatine phosphokinase increased [None]
  - Fall [None]
  - Grand mal convulsion [None]
  - Urinary tract infection [None]
